FAERS Safety Report 12158594 (Version 1)
Quarter: 2016Q1

REPORT INFORMATION
  Report Type: Spontaneous
  Country: US (occurrence: US)
  Receive Date: 20160308
  Receipt Date: 20160308
  Transmission Date: 20160526
  Serious: No
  Sender: FDA-Public Use
  Company Number: US-JNJFOC-20160118257

PATIENT
  Age: 5 Year
  Sex: Female

DRUGS (1)
  1. CHILDRENS TYLENOL [Suspect]
     Active Substance: ACETAMINOPHEN
     Indication: OROPHARYNGEAL PAIN
     Dosage: 2.5 TEASPOONS, 1X
     Route: 048
     Dates: start: 20160121, end: 20160121

REACTIONS (3)
  - Expired product administered [Unknown]
  - Product packaging issue [Unknown]
  - Medication error [Unknown]
